FAERS Safety Report 25079648 (Version 2)
Quarter: 2025Q3

REPORT INFORMATION
  Report Type: Spontaneous
  Country: US (occurrence: US)
  Receive Date: 20250314
  Receipt Date: 20250702
  Transmission Date: 20251020
  Serious: No
  Sender: PTC THERAPEUTICS
  Company Number: US-PTC THERAPEUTICS INC.-US-2024PTC001752

PATIENT
  Sex: Male
  Weight: 20 kg

DRUGS (2)
  1. ELADOCAGENE EXUPARVOVEC [Suspect]
     Active Substance: ELADOCAGENE EXUPARVOVEC
     Indication: Aromatic L-amino acid decarboxylase deficiency
     Dates: start: 20230322, end: 20230322
  2. GABAPENTIN [Concomitant]
     Active Substance: GABAPENTIN
     Indication: Dystonia

REACTIONS (1)
  - Drug ineffective [Recovering/Resolving]
